FAERS Safety Report 4444042-9 (Version None)
Quarter: 2004Q3

REPORT INFORMATION
  Report Type: 
  Country: None (occurrence: None)
  Receive Date: 20040729
  Receipt Date: 20031106
  Transmission Date: 20050211
  Serious: Yes (Hospitalization)
  Sender: FDA-Public Use
  Company Number: US-JNJFOC-20031101381

PATIENT
  Age: 60 Year
  Sex: Female

DRUGS (1)
  1. RISPERDAL [Suspect]

REACTIONS (2)
  - CONVULSION [None]
  - INTENTIONAL OVERDOSE [None]
